FAERS Safety Report 12627084 (Version 8)
Quarter: 2016Q4

REPORT INFORMATION
  Report Type: Spontaneous
  Country: US (occurrence: US)
  Receive Date: 20160805
  Receipt Date: 20161104
  Transmission Date: 20170207
  Serious: Yes (Other)
  Sender: FDA-Public Use
  Company Number: US-ALLERGAN-1664733US

PATIENT
  Age: 67 Year
  Sex: Female

DRUGS (18)
  1. MURO 128 [Concomitant]
     Active Substance: SODIUM CHLORIDE
     Indication: PRODUCT USED FOR UNKNOWN INDICATION
     Dosage: 2 GTT, TID
     Route: 047
     Dates: start: 1998
  2. CENTRUM SILVER ADULTS 50+ [Concomitant]
     Active Substance: MINERALS\VITAMINS
     Indication: PRODUCT USED FOR UNKNOWN INDICATION
     Dosage: 1 DF, QD
     Route: 065
  3. REFRESH OPTIVE ADVANCED [Suspect]
     Active Substance: CARBOXYMETHYLCELLULOSE SODIUM\GLYCERIN\POLYSORBATE 80
     Indication: CORNEAL TRANSPLANT
  4. FLUOROMETHOLONE, 0.1% [Suspect]
     Active Substance: FLUOROMETHOLONE
     Indication: DRY EYE
     Dosage: 1 GTT, TID
     Route: 047
     Dates: start: 1998
  5. OMEGA 3 [Concomitant]
     Active Substance: OMEGA-3 FATTY ACIDS
     Indication: PRODUCT USED FOR UNKNOWN INDICATION
     Dosage: 2 DF, QD
     Route: 065
  6. RESTASIS [Suspect]
     Active Substance: CYCLOSPORINE
     Indication: CORNEAL TRANSPLANT
     Dosage: 2 GTT, BID
     Route: 047
     Dates: start: 2011
  7. RESTASIS [Suspect]
     Active Substance: CYCLOSPORINE
     Indication: DRY EYE
     Dosage: UNK
  8. REFRESH P.M. [Suspect]
     Active Substance: MINERAL OIL\PETROLATUM
     Indication: DRY EYE
     Dosage: UNK
     Route: 047
  9. REFRESH OPTIVE ADVANCED [Suspect]
     Active Substance: CARBOXYMETHYLCELLULOSE SODIUM\GLYCERIN\POLYSORBATE 80
     Indication: DRY EYE
     Dosage: 2 GTT, PRN
     Route: 047
     Dates: start: 2011
  10. PRED FORTE [Suspect]
     Active Substance: PREDNISOLONE ACETATE
     Indication: DRY EYE
     Dosage: 1 GTT, UNK
     Dates: start: 1998
  11. ASPIRIN. [Concomitant]
     Active Substance: ASPIRIN
     Indication: PRODUCT USED FOR UNKNOWN INDICATION
     Dosage: 81 MG, QD
     Route: 065
  12. LUTEIN [Concomitant]
     Active Substance: LUTEIN
     Dosage: 40 MG, QD
     Route: 065
  13. VITAMIN D3 [Concomitant]
     Active Substance: CHOLECALCIFEROL
     Indication: PRODUCT USED FOR UNKNOWN INDICATION
     Dosage: 1000 IU, QD
     Route: 065
  14. RESTASIS [Suspect]
     Active Substance: CYCLOSPORINE
     Dosage: UNK
  15. FLUOROMETHOLONE, 0.1% [Suspect]
     Active Substance: FLUOROMETHOLONE
     Indication: CORNEAL TRANSPLANT
  16. REFRESH P.M. [Suspect]
     Active Substance: MINERAL OIL\PETROLATUM
     Indication: CORNEAL TRANSPLANT
  17. PRED FORTE [Suspect]
     Active Substance: PREDNISOLONE ACETATE
     Indication: CORNEAL TRANSPLANT
  18. LOSARTAN. [Concomitant]
     Active Substance: LOSARTAN
     Indication: PRODUCT USED FOR UNKNOWN INDICATION
     Dosage: 12.5 MG, QD
     Route: 065

REACTIONS (2)
  - Inappropriate schedule of drug administration [Unknown]
  - Corneal disorder [Recovered/Resolved]

NARRATIVE: CASE EVENT DATE: 201408
